FAERS Safety Report 6085996-7 (Version None)
Quarter: 2009Q1

REPORT INFORMATION
  Report Type: 
  Country: None (occurrence: None)
  Receive Date: 20090220
  Receipt Date: 20090212
  Transmission Date: 20090719
  Serious: Yes (Other)
  Sender: FDA-Public Use
  Company Number: US-AMGEN-KDL328506

PATIENT
  Sex: Male

DRUGS (3)
  1. ENBREL [Suspect]
     Indication: PSORIATIC ARTHROPATHY
     Dates: start: 20060101
  2. ASPIRIN [Concomitant]
  3. BENICAR [Concomitant]

REACTIONS (3)
  - DEAFNESS [None]
  - VERTIGO [None]
  - VIRAL INFECTION [None]
